FAERS Safety Report 8013623-8 (Version None)
Quarter: 2011Q4

REPORT INFORMATION
  Report Type: 
  Country: None (occurrence: None)
  Receive Date: 20111229
  Receipt Date: 20111226
  Transmission Date: 20120403
  Serious: Yes (Hospitalization, Other)
  Sender: FDA-Public Use
  Company Number: FR-PFIZER INC-2011302852

PATIENT
  Age: 76 Year
  Sex: Male
  Weight: 122 kg

DRUGS (10)
  1. GENTAMICIN [Suspect]
     Indication: DEVICE RELATED INFECTION
     Dosage: UNK
     Route: 042
     Dates: start: 20111004, end: 20111006
  2. VANCOMYCIN HCL [Suspect]
     Indication: DEVICE RELATED INFECTION
     Dosage: UNK
     Dates: start: 20111003, end: 20111005
  3. ZYVOX [Suspect]
     Indication: DEVICE RELATED INFECTION
     Dosage: UNK
     Dates: start: 20111007, end: 20111011
  4. AUGMENTIN [Suspect]
     Indication: DEVICE RELATED INFECTION
     Dosage: UNK
     Dates: start: 20111008, end: 20111011
  5. ATORVASTATIN CALCIUM [Concomitant]
  6. CEFTAZIDIME SODIUM [Suspect]
     Indication: DEVICE RELATED INFECTION
     Dosage: UNK
     Dates: start: 20111003, end: 20111005
  7. TIENAM [Suspect]
     Indication: DEVICE RELATED INFECTION
     Dosage: UNK
     Dates: start: 20111005, end: 20111007
  8. IRBESARTAN [Concomitant]
  9. ALDACTAZIDE [Concomitant]
  10. VERAPAMIL [Concomitant]

REACTIONS (2)
  - RENAL FAILURE [None]
  - EOSINOPHILIA [None]
